FAERS Safety Report 5195914-1 (Version None)
Quarter: 2007Q1

REPORT INFORMATION
  Report Type: 
  Country: None (occurrence: None)
  Receive Date: 20070102
  Receipt Date: 20061219
  Transmission Date: 20070707
  Serious: Yes (Life-Threatening, Hospitalization)
  Sender: FDA-Public Use
  Company Number: FRWYE880219DEC06

PATIENT
  Age: 52 Year
  Sex: Female
  Weight: 58 kg

DRUGS (2)
  1. ENBREL [Suspect]
     Indication: ANKYLOSING SPONDYLITIS
     Route: 058
     Dates: start: 20060511, end: 20060615
  2. LEVOTHYROXINE SODIUM [Concomitant]
     Indication: AUTOIMMUNE THYROIDITIS
     Route: 048

REACTIONS (18)
  - ADENOCARCINOMA PANCREAS [None]
  - BLOOD POTASSIUM DECREASED [None]
  - BLOOD SODIUM DECREASED [None]
  - CHOLECYSTITIS ACUTE [None]
  - CYTOLYTIC HEPATITIS [None]
  - DEHYDRATION [None]
  - DUODENAL STENOSIS [None]
  - METASTASES TO PERITONEUM [None]
  - METASTASES TO SMALL INTESTINE [None]
  - NEOPLASM PROGRESSION [None]
  - OVARIAN CANCER [None]
  - OVARIAN CANCER METASTATIC [None]
  - PANCREATIC CARCINOMA [None]
  - PANCREATIC CARCINOMA METASTATIC [None]
  - PANCREATITIS ACUTE [None]
  - PELVIC MASS [None]
  - RENAL FAILURE [None]
  - SMALL INTESTINE CARCINOMA [None]
